FAERS Safety Report 7420580-1 (Version None)
Quarter: 2011Q2

REPORT INFORMATION
  Report Type: 
  Country: None (occurrence: None)
  Receive Date: 20110418
  Receipt Date: 20110413
  Transmission Date: 20111010
  Serious: No
  Sender: FDA-Public Use
  Company Number: US-PFIZER INC-2011081960

PATIENT
  Sex: Female

DRUGS (3)
  1. MINOCYCLINE [Concomitant]
     Indication: INFECTION
     Dosage: UNK
     Dates: start: 20110301
  2. CHANTIX [Suspect]
     Indication: SMOKING CESSATION THERAPY
     Dosage: 0.5 MG, DAILY
     Route: 048
     Dates: start: 20110412
  3. CLARITIN [Concomitant]
     Indication: HYPERSENSITIVITY
     Dosage: UNK
     Dates: start: 20100101

REACTIONS (3)
  - TREMOR [None]
  - CRYING [None]
  - EMOTIONAL DISORDER [None]
